FAERS Safety Report 25181686 (Version 1)
Quarter: 2025Q2

REPORT INFORMATION
  Report Type: Report from Study
  Country: US (occurrence: US)
  Receive Date: 20250410
  Receipt Date: 20250410
  Transmission Date: 20250716
  Serious: Yes (Hospitalization, Other)
  Sender: UCB
  Company Number: US-UCBSA-2025020622

PATIENT
  Age: 34 Year
  Sex: Female

DRUGS (2)
  1. BIMEKIZUMAB [Suspect]
     Active Substance: BIMEKIZUMAB
     Indication: Hidradenitis
     Dosage: 320 MILLIGRAM, EV 2 WEEKS(QOW)
     Route: 058
     Dates: start: 20250201
  2. TRINTELLIX [Concomitant]
     Active Substance: VORTIOXETINE HYDROBROMIDE
     Indication: Antidepressant therapy

REACTIONS (4)
  - Urinary tract infection [Recovering/Resolving]
  - Abdominal abscess [Recovering/Resolving]
  - Breast abscess [Recovering/Resolving]
  - Vulvovaginal mycotic infection [Recovering/Resolving]

NARRATIVE: CASE EVENT DATE: 20250301
